FAERS Safety Report 14953144 (Version 2)
Quarter: 2018Q2

REPORT INFORMATION
  Report Type: Report from Study
  Country: JP (occurrence: JP)
  Receive Date: 20180530
  Receipt Date: 20180605
  Transmission Date: 20180711
  Serious: Yes (Death, Other)
  Sender: FDA-Public Use
  Company Number: JP-PFIZER INC-2018101107

PATIENT
  Age: 72 Year
  Sex: Male
  Weight: 62 kg

DRUGS (3)
  1. RHEUMATREX [Concomitant]
     Active Substance: METHOTREXATE SODIUM
     Dosage: 6 MG, WEEKLY
     Route: 048
     Dates: end: 20180225
  2. XELJANZ [Suspect]
     Active Substance: TOFACITINIB CITRATE
     Indication: RHEUMATOID ARTHRITIS
     Dosage: 5 MG, 2X/DAY
     Route: 048
     Dates: start: 20170907, end: 20180225
  3. FOLIAMIN [Concomitant]
     Active Substance: FOLIC ACID
     Route: 048

REACTIONS (4)
  - Dyspnoea [Fatal]
  - Interstitial lung disease [Fatal]
  - Pneumocystis jirovecii pneumonia [Unknown]
  - Nasopharyngitis [Unknown]

NARRATIVE: CASE EVENT DATE: 20180226
